FAERS Safety Report 9127388 (Version 1)
Quarter: 2013Q1

REPORT INFORMATION
  Report Type: Spontaneous
  Country: US (occurrence: US)
  Receive Date: 20130122
  Receipt Date: 20130122
  Transmission Date: 20140127
  Serious: Yes (Other)
  Sender: FDA-Public Use
  Company Number: US-RB-048407-13

PATIENT
  Age: 19 Year
  Sex: Male

DRUGS (3)
  1. MUCINEX DM [Suspect]
     Indication: NASOPHARYNGITIS
     Dosage: STARTED TAKING ON ??/DEC/2012
     Route: 048
  2. MUCINEX DM [Suspect]
  3. ROBITUSSIN LINGERING COLD LONG-ACTING COUGH GELS [Suspect]
     Indication: NASOPHARYNGITIS
     Dosage: STARTED ON ??/DEC/2012
     Route: 048

REACTIONS (5)
  - Convulsion [Unknown]
  - Muscle spasms [Unknown]
  - Musculoskeletal stiffness [Unknown]
  - Hypervigilance [Unknown]
  - Lagophthalmos [Unknown]
